FAERS Safety Report 7320727-1 (Version None)
Quarter: 2011Q1

REPORT INFORMATION
  Report Type: 
  Country: None (occurrence: None)
  Receive Date: 20110228
  Receipt Date: 20110223
  Transmission Date: 20110831
  Serious: Yes (Hospitalization, Other)
  Sender: FDA-Public Use
  Company Number: US-ROCHE-745819

PATIENT
  Sex: Female

DRUGS (2)
  1. RIBAVARIN [Suspect]
     Indication: HEPATITIS C
     Dosage: DIVIDED DOSES
     Route: 048
     Dates: start: 20101116, end: 20110222
  2. PEGASYS [Suspect]
     Indication: HEPATITIS C
     Dosage: FORM: PFS
     Route: 058
     Dates: start: 20101116, end: 20110222

REACTIONS (10)
  - PLATELET COUNT DECREASED [None]
  - NAUSEA [None]
  - INFECTION [None]
  - DYSPEPSIA [None]
  - HAEMORRHAGE [None]
  - BLOOD GLUCOSE INCREASED [None]
  - DEPRESSION [None]
  - WEIGHT DECREASED [None]
  - VOMITING [None]
  - INJECTION SITE HAEMATOMA [None]
